FAERS Safety Report 21191922 (Version 3)
Quarter: 2023Q1

REPORT INFORMATION
  Report Type: Report from Study
  Country: US (occurrence: US)
  Receive Date: 20220809
  Receipt Date: 20230105
  Transmission Date: 20230418
  Serious: Yes (Hospitalization, Other)
  Sender: FDA-Public Use
  Company Number: US-BIOGEN-2022BI01146049

PATIENT
  Age: 63 Year
  Sex: Male
  Weight: 80.5 kg

DRUGS (3)
  1. TYSABRI [Suspect]
     Active Substance: NATALIZUMAB
     Indication: Acute graft versus host disease
     Route: 050
  2. TYSABRI [Suspect]
     Active Substance: NATALIZUMAB
     Dosage: DAY 1
     Route: 050
     Dates: start: 20180503
  3. TYSABRI [Suspect]
     Active Substance: NATALIZUMAB
     Dosage: DAY 14
     Route: 050
     Dates: start: 20180517

REACTIONS (3)
  - Graft versus host disease in gastrointestinal tract [Recovered/Resolved with Sequelae]
  - Escherichia sepsis [Recovered/Resolved]
  - Acinetobacter sepsis [Recovered/Resolved]

NARRATIVE: CASE EVENT DATE: 20180503
